FAERS Safety Report 6083022-7 (Version None)
Quarter: 2009Q1

REPORT INFORMATION
  Report Type: 
  Country: None (occurrence: None)
  Receive Date: 20090218
  Receipt Date: 20090213
  Transmission Date: 20090719
  Serious: Yes (Hospitalization)
  Sender: FDA-Public Use
  Company Number: FR-WYE-G03021309

PATIENT
  Sex: Male
  Weight: 73 kg

DRUGS (4)
  1. RAPAMUNE [Suspect]
     Indication: PROPHYLAXIS AGAINST TRANSPLANT REJECTION
     Dosage: 3 MG TOTAL DAILY
     Route: 048
     Dates: start: 20080912, end: 20090109
  2. SOLUPRED [Concomitant]
     Route: 048
     Dates: start: 20070821
  3. MOPRAL [Concomitant]
     Route: 048
     Dates: start: 20070821
  4. CELLCEPT [Concomitant]
     Route: 048
     Dates: start: 20070821

REACTIONS (1)
  - HEPATITIS [None]
